FAERS Safety Report 5462477-2 (Version None)
Quarter: 2007Q3

REPORT INFORMATION
  Report Type: 
  Country: None (occurrence: None)
  Receive Date: 20070816
  Receipt Date: 20060622
  Transmission Date: 20080115
  Serious: Yes (Other)
  Sender: FDA-Public Use
  Company Number: 2006072844

PATIENT
  Age: 60 Year
  Sex: Male

DRUGS (5)
  1. SULFASALAZINE [Suspect]
     Indication: ANKYLOSING SPONDYLITIS
  2. TERAZOSIN HCL [Concomitant]
  3. PLAQUENIL [Concomitant]
  4. COMBIVENT (IPRATOPIUM BROMIDE, SALBUTAMOL SULFATE) [Concomitant]
  5. AMBIEN [Concomitant]

REACTIONS (5)
  - DERMATITIS CONTACT [None]
  - DERMATITIS EXFOLIATIVE [None]
  - DRUG RASH WITH EOSINOPHILIA AND SYSTEMIC SYMPTOMS [None]
  - HEPATITIS [None]
  - PYREXIA [None]
